FAERS Safety Report 5356629-X (Version None)
Quarter: 2007Q2

REPORT INFORMATION
  Report Type: 
  Country: None (occurrence: None)
  Receive Date: 20070614
  Receipt Date: 20070606
  Transmission Date: 20071010
  Serious: Yes (Other)
  Sender: FDA-Public Use
  Company Number: HQWYE708114SEP06

PATIENT
  Sex: Male
  Weight: 72.8 kg

DRUGS (12)
  1. SIROLIMUS [Suspect]
     Indication: PROPHYLAXIS AGAINST TRANSPLANT REJECTION
     Dosage: UNSPECIFIED
     Route: 048
     Dates: start: 20031223, end: 20040813
  2. SIROLIMUS [Suspect]
     Route: 048
     Dates: start: 20040814, end: 20050902
  3. PREDNISONE TAB [Concomitant]
     Indication: PROPHYLAXIS AGAINST TRANSPLANT REJECTION
     Route: 048
     Dates: start: 20020418
  4. EPOGEN [Concomitant]
     Indication: ANAEMIA
     Route: 058
     Dates: start: 20050913
  5. ATENOLOL [Concomitant]
     Indication: HYPERTENSION
     Route: 048
     Dates: start: 20010531
  6. FUROSEMIDE [Concomitant]
     Indication: HYPERTENSION
     Route: 048
     Dates: start: 20040623, end: 20060130
  7. SIMVASTATIN [Concomitant]
     Indication: HYPERCHOLESTEROLAEMIA
     Route: 048
     Dates: start: 20041009
  8. MYCOPHENOLATE MOFETIL [Concomitant]
     Indication: PROPHYLAXIS AGAINST TRANSPLANT REJECTION
     Route: 048
     Dates: start: 20040616, end: 20050902
  9. MYCOPHENOLATE MOFETIL [Concomitant]
     Route: 048
     Dates: start: 20050903, end: 20051004
  10. MYCOPHENOLATE MOFETIL [Concomitant]
     Route: 048
     Dates: start: 20051005, end: 20051016
  11. MYCOPHENOLATE MOFETIL [Concomitant]
     Route: 048
     Dates: start: 20051017
  12. NIFEDIPINE [Concomitant]
     Indication: HYPERTENSION
     Route: 048
     Dates: start: 20010529

REACTIONS (1)
  - RENAL DISORDER [None]
